FAERS Safety Report 8234752-X (Version None)
Quarter: 2012Q1

REPORT INFORMATION
  Report Type: 
  Country: None (occurrence: None)
  Receive Date: 20120326
  Receipt Date: 20120315
  Transmission Date: 20120608
  Serious: Yes (Hospitalization, Other)
  Sender: FDA-Public Use
  Company Number: US-ELI_LILLY_AND_COMPANY-US201105007931

PATIENT
  Sex: Female

DRUGS (11)
  1. FORTEO [Suspect]
     Dosage: 20 UG, QD
  2. ZOLOFT [Concomitant]
     Dosage: 50 MG, UNK
  3. PRILOSEC [Concomitant]
  4. FORTEO [Suspect]
     Dosage: 20 UG, QD
     Route: 065
  5. FORTEO [Suspect]
     Indication: OSTEOPOROSIS
     Dosage: 20 UG, QD
     Route: 065
     Dates: start: 20110420
  6. FORTEO [Suspect]
     Dosage: 20 UG, QD
     Route: 065
  7. FORTEO [Suspect]
     Dosage: 20 UG, QD
     Route: 065
  8. NEURONTIN [Concomitant]
     Dosage: 300 MG, UNK
  9. TRAZODONE HCL [Concomitant]
     Indication: SLEEP DISORDER
  10. CALCIUM CARBONATE [Concomitant]
  11. VITAMIN D [Concomitant]

REACTIONS (12)
  - DRUG INEFFECTIVE [None]
  - SURGERY [None]
  - MUSCLE SPASMS [None]
  - BACK PAIN [None]
  - HIP ARTHROPLASTY [None]
  - INTERVERTEBRAL DISC PROTRUSION [None]
  - PNEUMONIA [None]
  - PAIN [None]
  - MOVEMENT DISORDER [None]
  - IMPAIRED HEALING [None]
  - ARTHRALGIA [None]
  - FEMUR FRACTURE [None]
